FAERS Safety Report 23506403 (Version 1)
Quarter: 2024Q1

REPORT INFORMATION
  Report Type: Spontaneous
  Country: FR (occurrence: FR)
  Receive Date: 20240209
  Receipt Date: 20240209
  Transmission Date: 20240410
  Serious: Yes (Other)
  Sender: FDA-Public Use
  Company Number: FR-AMGEN-FRASP2024022912

PATIENT
  Sex: Male

DRUGS (1)
  1. XGEVA [Suspect]
     Active Substance: DENOSUMAB
     Indication: Product used for unknown indication
     Dosage: ONE INJECTION OF 120 MILLIGRAM, QWK (2 ADDITIONAL DOSES FOR FIRST MONTH; ONE ON DAY 8 AND ONE ON DAY
     Route: 065

REACTIONS (2)
  - Renal cancer metastatic [Unknown]
  - Off label use [Unknown]
